FAERS Safety Report 25143505 (Version 3)
Quarter: 2025Q2

REPORT INFORMATION
  Report Type: Spontaneous
  Country: CN (occurrence: CN)
  Receive Date: 20250401
  Receipt Date: 20250404
  Transmission Date: 20250717
  Serious: Yes (Hospitalization, Other)
  Sender: Kenvue
  Company Number: CN-KENVUE-20250308814

PATIENT

DRUGS (1)
  1. CHILDRENS MOTRIN [Suspect]
     Active Substance: IBUPROFEN
     Indication: Patent ductus arteriosus
     Dosage: 0.30 MILLILITER, ONCE A DAY
     Route: 048
     Dates: start: 20250312, end: 20250316

REACTIONS (2)
  - Off label use [Unknown]
  - Thrombocytopenia neonatal [Recovering/Resolving]

NARRATIVE: CASE EVENT DATE: 20250312
